FAERS Safety Report 5720978-3 (Version None)
Quarter: 2008Q2

REPORT INFORMATION
  Report Type: 
  Country: None (occurrence: None)
  Receive Date: 20080424
  Receipt Date: 20080415
  Transmission Date: 20081010
  Serious: Yes (Other)
  Sender: FDA-Public Use
  Company Number: 2008009400

PATIENT
  Sex: Male
  Weight: 7.2576 kg

DRUGS (1)
  1. DESITIN DIAPER RASH (ZINC OXIDE) [Suspect]
     Indication: DERMATITIS DIAPER
     Dosage: SMEAR JOB EVERY TIME CHANGE
     Dates: start: 20080201, end: 20080201

REACTIONS (1)
  - APPLICATION SITE BURN [None]
